FAERS Safety Report 4967302-1 (Version None)
Quarter: 2006Q2

REPORT INFORMATION
  Report Type: 
  Country: None (occurrence: None)
  Receive Date: 20060404
  Receipt Date: 20060320
  Transmission Date: 20061013
  Serious: Yes (Death)
  Sender: FDA-Public Use
  Company Number: GXBR2006US00772

PATIENT
  Age: 19 Year
  Sex: Male

DRUGS (3)
  1. FLUOXETINE [Suspect]
     Indication: ANXIETY
     Dosage: SEE IMAGE
     Route: 048
     Dates: start: 20020701, end: 20021201
  2. FLUOXETINE [Suspect]
     Indication: ANXIETY
     Dosage: SEE IMAGE
     Route: 048
     Dates: start: 20021201, end: 20030801
  3. MINOCYCLINE HCL [Suspect]
     Indication: ACNE
     Dates: start: 20020401, end: 20030801

REACTIONS (8)
  - COMPLETED SUICIDE [None]
  - DYSPNOEA [None]
  - EMOTIONAL DISTRESS [None]
  - GUN SHOT WOUND [None]
  - HEAD INJURY [None]
  - IATROGENIC INJURY [None]
  - INTENTIONAL SELF-INJURY [None]
  - THYROID DISORDER [None]
